FAERS Safety Report 14723201 (Version 3)
Quarter: 2018Q2

REPORT INFORMATION
  Report Type: Spontaneous
  Country: DE (occurrence: DE)
  Receive Date: 20180405
  Receipt Date: 20180605
  Transmission Date: 20180711
  Serious: Yes (Other)
  Sender: FDA-Public Use
  Company Number: DE-009507513-1705DEU014212

PATIENT
  Age: 33 Year
  Sex: Male
  Weight: 81 kg

DRUGS (2)
  1. ZEPATIER [Suspect]
     Active Substance: ELBASVIR\GRAZOPREVIR
     Indication: CHRONIC HEPATITIS C
     Dosage: DAILY DOSE: 1 DOSAGE FORM EVERY DAY
     Route: 048
     Dates: start: 20170508, end: 20170730
  2. METADEC [Suspect]
     Active Substance: NANDROLONE DECANOATE
     Indication: DRUG REHABILITATION
     Dosage: 40 MG, TWICE DAILY (80 MG EVERY DAY)

REACTIONS (4)
  - Irritability [Recovering/Resolving]
  - Orchitis [Unknown]
  - Drug dependence [Recovering/Resolving]
  - Drug withdrawal syndrome [Recovering/Resolving]

NARRATIVE: CASE EVENT DATE: 20170511
